FAERS Safety Report 7370543-X (Version None)
Quarter: 2011Q1

REPORT INFORMATION
  Report Type: 
  Country: None (occurrence: None)
  Receive Date: 20110323
  Receipt Date: 20110307
  Transmission Date: 20110831
  Serious: No
  Sender: FDA-Public Use
  Company Number: US-BAYER-2011-022590

PATIENT
  Age: 90 Year
  Sex: Female
  Weight: 61 kg

DRUGS (3)
  1. CALTRATE [CALCIUM CARBONATE] [Concomitant]
  2. ALEVE (CAPLET) [Suspect]
     Dosage: 220 MG, BID
     Route: 048
     Dates: end: 20110304
  3. VITAMINS NOS [Concomitant]

REACTIONS (1)
  - LIP SWELLING [None]
